FAERS Safety Report 16593677 (Version 1)
Quarter: 2019Q3

REPORT INFORMATION
  Report Type: Spontaneous
  Country: DE (occurrence: DE)
  Receive Date: 20190718
  Receipt Date: 20190718
  Transmission Date: 20191004
  Serious: Yes (Life-Threatening, Hospitalization, Other)
  Sender: FDA-Public Use
  Company Number: DE-SA-2019SA190049

PATIENT
  Age: 72 Year
  Sex: Male
  Weight: 63 kg

DRUGS (8)
  1. METOPROLOL. [Concomitant]
     Active Substance: METOPROLOL
     Dosage: 23.75 MG, 1-0-1-0, TABLETTEN
     Route: 048
  2. INSULIN GLARGINE [Suspect]
     Active Substance: INSULIN GLARGINE
     Dosage: 100 IU, 0-0-10-0 IU, SOLUTION FOR INJECTION / INFUSION
     Route: 058
  3. RAMIPRIL. [Concomitant]
     Active Substance: RAMIPRIL
     Dosage: 5 MG, 1-0-0-0, TABLETTEN
     Route: 048
  4. AMLODIPINE [Concomitant]
     Active Substance: AMLODIPINE BESYLATE
     Dosage: 5 MG, 1-0-1-0, TABLETTEN
     Route: 048
  5. TORASEMID [Concomitant]
     Active Substance: TORSEMIDE
     Dosage: 10 MG, 1-0-0-0, TABLETTEN
     Route: 048
  6. INSULIN GLULISINE [Suspect]
     Active Substance: INSULIN GLULISINE
     Dosage: 100 IU, 2-2-2-2 IU, SOLUTION FOR INJECTION / INFUSION
     Route: 058
  7. VIGANTOLETTEN [Concomitant]
     Active Substance: CHOLECALCIFEROL
     Dosage: 1000 IU, 1-0-0-0, TABLETS
     Route: 048
  8. ARELIX [PIRETANIDE] [Concomitant]
     Active Substance: PIRETANIDE
     Dosage: 6 MG, 1-0-0-0, TABLETTEN
     Route: 048

REACTIONS (5)
  - Product administration error [Unknown]
  - Hyperglycaemia [Unknown]
  - Renal impairment [Unknown]
  - Electrolyte imbalance [Unknown]
  - Fatigue [Unknown]
